FAERS Safety Report 15458589 (Version 1)
Quarter: 2018Q4

REPORT INFORMATION
  Report Type: Spontaneous
  Country: GB (occurrence: GB)
  Receive Date: 20181003
  Receipt Date: 20181003
  Transmission Date: 20190204
  Serious: Yes (Disabling, Other)
  Sender: FDA-Public Use
  Company Number: GB-AUROBINDO-AUR-APL-2013-08958

PATIENT
  Age: 29 Year
  Sex: Male
  Weight: 65 kg

DRUGS (2)
  1. SUMATRIPTAN TABLETS 50 MG [Suspect]
     Active Substance: SUMATRIPTAN SUCCINATE
     Indication: MIGRAINE
     Dosage: 50 MG,AS NECESSARY,
     Route: 048
     Dates: start: 20131002, end: 20131012
  2. PARACETAMOL [Concomitant]
     Active Substance: ACETAMINOPHEN
     Indication: ILL-DEFINED DISORDER
     Dosage: UNK UNK,UNK,
     Route: 065

REACTIONS (15)
  - Irritability [Unknown]
  - Product substitution issue [Unknown]
  - Aggression [Unknown]
  - Acne [Not Recovered/Not Resolved]
  - Mycobacterium abscessus infection [Not Recovered/Not Resolved]
  - Acne cystic [Not Recovered/Not Resolved]
  - Drug ineffective [Unknown]
  - Decreased appetite [Unknown]
  - Anxiety [Unknown]
  - Agitation [Unknown]
  - Nausea [Unknown]
  - Fatigue [Not Recovered/Not Resolved]
  - Condition aggravated [Unknown]
  - Pain [Not Recovered/Not Resolved]
  - Insomnia [Not Recovered/Not Resolved]

NARRATIVE: CASE EVENT DATE: 20131002
